FAERS Safety Report 10149132 (Version 2)
Quarter: 2014Q2

REPORT INFORMATION
  Report Type: Report from Study
  Country: AU (occurrence: AU)
  Receive Date: 20140502
  Receipt Date: 20140502
  Transmission Date: 20141212
  Serious: Yes (Other)
  Sender: FDA-Public Use
  Company Number: AU-ACCORD-023415

PATIENT
  Age: 69 Year
  Sex: Female

DRUGS (7)
  1. MITOMYCIN [Suspect]
     Indication: CORNEAL EPITHELIAL MICROCYSTS
     Dosage: 0.2 ML OF MITOMYCIN C (MMC) 0.01 %
  2. CEFALOTIN [Concomitant]
     Dosage: SUBCONJUNCTIVAL
  3. DEXAMETHASONE [Concomitant]
  4. PREDNEFRIN FORTE [Concomitant]
     Dosage: GUTT PREDNEFRIN FORTE 1% EVERY 2 WAKING HOURS
  5. CHLORAMPHENICOL [Concomitant]
  6. HYCOR [Concomitant]
     Dosage: HYCOR 1% OINTMENT NOCTE
  7. LIDOCAINE [Concomitant]
     Indication: ANAESTHESIA
     Dosage: LIGNOCAINE GEL 2%

REACTIONS (2)
  - Off label use [Unknown]
  - Corneal decompensation [Recovered/Resolved]
